FAERS Safety Report 9875774 (Version 1)
Quarter: 2014Q1

REPORT INFORMATION
  Report Type: Spontaneous
  Country: US (occurrence: None)
  Receive Date: 20140205
  Receipt Date: 20140205
  Transmission Date: 20141002
  Serious: Yes (Hospitalization)
  Sender: FDA-Public Use
  Company Number: None

PATIENT
  Age: 24 Year
  Sex: Male
  Weight: 110.9 kg

DRUGS (10)
  1. CHLORPHENIRAMINE/DEXTROMETHORPHAN [Suspect]
     Indication: INTENTIONAL OVERDOSE
     Dosage: 32 TABLETS.
     Route: 048
     Dates: start: 20131215
  2. VERAPAMIL ER [Concomitant]
  3. TRILEPTAL [Concomitant]
  4. PROAIR [Concomitant]
  5. TRAZODONE [Concomitant]
  6. FOLIC ACID [Concomitant]
  7. ZOCOR [Concomitant]
  8. SERTRALINE [Concomitant]
  9. FLOVENT [Concomitant]
  10. INVEGA [Concomitant]

REACTIONS (2)
  - Intentional overdose [None]
  - Rhabdomyolysis [None]
